FAERS Safety Report 8097035-7 (Version None)
Quarter: 2012Q1

REPORT INFORMATION
  Report Type: 
  Country: None (occurrence: None)
  Receive Date: 20120129
  Receipt Date: 20111202
  Transmission Date: 20120608
  Serious: No
  Sender: FDA-Public Use
  Company Number: US-ABBOTT-11P-163-0880881-00

PATIENT
  Sex: Female
  Weight: 68.1 kg

DRUGS (2)
  1. UNKNOWN MEDICATION(S) [Concomitant]
     Indication: DIABETES MELLITUS
  2. HUMIRA [Suspect]
     Indication: GRANULOMA ANNULARE

REACTIONS (3)
  - PAIN [None]
  - RASH [None]
  - OFF LABEL USE [None]
